FAERS Safety Report 10400078 (Version 1)
Quarter: 2014Q3

REPORT INFORMATION
  Report Type: Spontaneous
  Country: US (occurrence: US)
  Receive Date: 20140821
  Receipt Date: 20140821
  Transmission Date: 20150326
  Serious: Yes (Life-Threatening, Hospitalization, Other)
  Sender: FDA-Public Use
  Company Number: US-BAYER-2014-124707

PATIENT
  Sex: Female

DRUGS (2)
  1. YASMIN [Suspect]
     Active Substance: DROSPIRENONE\ETHINYL ESTRADIOL
     Dosage: UNK
     Dates: start: 200801, end: 20120828
  2. OCELLA [Suspect]
     Active Substance: DROSPIRENONE\ETHINYL ESTRADIOL
     Dosage: UNK
     Dates: end: 20120828

REACTIONS (10)
  - Gait disturbance [None]
  - Muscle tightness [None]
  - Gallbladder disorder [None]
  - Fear of disease [None]
  - Cerebrovascular accident [None]
  - Emotional distress [None]
  - Injury [None]
  - Pain [None]
  - Deep vein thrombosis [None]
  - Anxiety [None]

NARRATIVE: CASE EVENT DATE: 20120829
